FAERS Safety Report 5610265-6 (Version None)
Quarter: 2008Q1

REPORT INFORMATION
  Report Type: 
  Country: None (occurrence: None)
  Receive Date: 20080129
  Receipt Date: 20080118
  Transmission Date: 20080703
  Serious: Yes (Hospitalization)
  Sender: FDA-Public Use
  Company Number: POMP-1000039

PATIENT
  Age: 37 Year
  Sex: Female

DRUGS (1)
  1. MYOZYME [Suspect]
     Indication: GLYCOGEN STORAGE DISEASE TYPE II
     Dosage: 20 MG/KG, Q2W, INTRAVENOUS
     Route: 042
     Dates: start: 20060101

REACTIONS (12)
  - DIZZINESS [None]
  - EYELID OEDEMA [None]
  - HEADACHE [None]
  - LIP SWELLING [None]
  - PAIN IN EXTREMITY [None]
  - PARAESTHESIA [None]
  - POOR VENOUS ACCESS [None]
  - PRURITUS [None]
  - RASH ERYTHEMATOUS [None]
  - RASH MACULAR [None]
  - TACHYCARDIA [None]
  - URINARY TRACT INFECTION [None]
